FAERS Safety Report 21726897 (Version 1)
Quarter: 2022Q4

REPORT INFORMATION
  Report Type: Spontaneous
  Country: US (occurrence: None)
  Receive Date: 20221213
  Receipt Date: 20221213
  Transmission Date: 20230112
  Serious: Yes (Hospitalization)
  Sender: FDA-Public Use
  Company Number: None

PATIENT
  Age: 66 Year
  Sex: Male
  Weight: 53.9 kg

DRUGS (1)
  1. LURBINECTEDIN [Suspect]
     Active Substance: LURBINECTEDIN

REACTIONS (4)
  - Dyspnoea [None]
  - Chest pain [None]
  - Constipation [None]
  - Pleural effusion [None]

NARRATIVE: CASE EVENT DATE: 20221207
